FAERS Safety Report 18704884 (Version 2)
Quarter: 2021Q1

REPORT INFORMATION
  Report Type: Report from Study
  Country: None (occurrence: US)
  Receive Date: 20210105
  Receipt Date: 20210210
  Transmission Date: 20210419
  Serious: Yes (Other)
  Sender: FDA-Public Use
  Company Number: US-ABBVIE-21K-163-3717417-00

PATIENT
  Sex: Female
  Weight: 55.84 kg

DRUGS (4)
  1. VENCLEXTA [Suspect]
     Active Substance: VENETOCLAX
     Dosage: TAKE 4 TABLET(S) BY MOUTH (400MG) EVERY DAY THEREAFTER
     Route: 048
  2. VENCLEXTA [Suspect]
     Active Substance: VENETOCLAX
     Dosage: TAKE 3 TABLET(S) BY MOUTH (300MG) FOR 1 WEEK(S)
     Route: 048
  3. VENCLEXTA [Suspect]
     Active Substance: VENETOCLAX
     Indication: T-CELL PROLYMPHOCYTIC LEUKAEMIA
     Dosage: TAKE 1 TABLET BY MOUTH (100MG) EVERY DAY FOR 1 WEEK(S)
     Route: 048
     Dates: start: 201905
  4. VENCLEXTA [Suspect]
     Active Substance: VENETOCLAX
     Indication: ADULT T-CELL LYMPHOMA/LEUKAEMIA
     Dosage: TAKE 2 TABLET BY MOUTH (200MG) EVERY DAY FOR 1 WEEK(S)
     Route: 048

REACTIONS (3)
  - Headache [Unknown]
  - Cataract [Unknown]
  - Off label use [Unknown]
